FAERS Safety Report 7503614-5 (Version None)
Quarter: 2011Q1

REPORT INFORMATION
  Report Type: 
  Country: None (occurrence: None)
  Receive Date: 20110322
  Receipt Date: 20110131
  Transmission Date: 20110831
  Serious: Yes (Hospitalization)
  Sender: FDA-Public Use
  Company Number: UTC-004976

PATIENT
  Age: 66 Year
  Sex: Female

DRUGS (2)
  1. COUMADIN [Concomitant]
  2. TYVASO [Suspect]
     Dosage: 96 MCG (24 MCG, 4 IN 1 D), INHALATION
     Route: 055
     Dates: start: 20110121, end: 20110128

REACTIONS (1)
  - HAEMOPTYSIS [None]
